FAERS Safety Report 6898646-4 (Version None)
Quarter: 2010Q3

REPORT INFORMATION
  Report Type: 
  Country: None (occurrence: None)
  Receive Date: 20100729
  Receipt Date: 20100715
  Transmission Date: 20110219
  Serious: Yes (Other)
  Sender: FDA-Public Use
  Company Number: A0872192A

PATIENT
  Sex: Female

DRUGS (4)
  1. BENZOYL PEROXIDE (FORMULATION UNKNOWN) (BENZOYL PEROXIDE) [Suspect]
     Indication: PRODUCT USED FOR UNKNOWN INDICATION
     Dosage: / TOPICAL
     Route: 061
     Dates: start: 20100603, end: 20100705
  2. BENZOYL PEROXIDE (FORMULATION UNKNOWN) (BENZOYL PEROXIDE) [Suspect]
     Indication: PRODUCT USED FOR UNKNOWN INDICATION
     Dosage: / TOPICAL
     Route: 061
     Dates: start: 20100603, end: 20100705
  3. SALICYLIC ACID (FORMULATION UNKNOWN) (SALICYLIC ACID) [Suspect]
     Indication: PRODUCT USED FOR UNKNOWN INDICATION
     Dosage: / TOPICAL
     Route: 061
     Dates: start: 20100603, end: 20100705
  4. BENZOYL PEROXIDE (FORMULATION UNKNOWN) (BENZOYL PEROXIDE) [Suspect]
     Indication: PRODUCT USED FOR UNKNOWN INDICATION
     Dosage: / TOPICAL
     Route: 061
     Dates: start: 20100603, end: 20100705

REACTIONS (3)
  - DRUG HYPERSENSITIVITY [None]
  - EYE IRRITATION [None]
  - OCULAR VASCULITIS [None]
